FAERS Safety Report 21557108 (Version 1)
Quarter: 2022Q4

REPORT INFORMATION
  Report Type: Spontaneous
  Country: GB (occurrence: GB)
  Receive Date: 20221104
  Receipt Date: 20221104
  Transmission Date: 20230112
  Serious: Yes (Death, Life-Threatening, Other)
  Sender: FDA-Public Use
  Company Number: GB-AMGEN-GBRSP2022188969

PATIENT

DRUGS (9)
  1. BLINATUMOMAB [Suspect]
     Active Substance: BLINATUMOMAB
     Indication: B precursor type acute leukaemia
     Dosage: UNK
     Route: 065
  2. FILGRASTIM [Suspect]
     Active Substance: FILGRASTIM
     Indication: Neutropenia
     Route: 065
  3. FLUDARABINE [Concomitant]
     Active Substance: FLUDARABINE PHOSPHATE
     Dosage: 150 MILLIGRAM/M2
  4. CYCLOPHOSPHAMIDE [Concomitant]
     Active Substance: CYCLOPHOSPHAMIDE
  5. ALEMTUZUMAB [Concomitant]
     Active Substance: ALEMTUZUMAB
     Dosage: 1.0 MILLIGRAM
  6. INOTUZUMAB OZOGAMICIN [Concomitant]
     Active Substance: INOTUZUMAB OZOGAMICIN
  7. TOCILIZUMAB [Concomitant]
     Active Substance: TOCILIZUMAB
  8. SILTUXIMAB [Concomitant]
     Active Substance: SILTUXIMAB
  9. DEXAMETHASONE [Concomitant]
     Active Substance: DEXAMETHASONE
     Dosage: 0.2 MILLIGRAM/KG , QD

REACTIONS (22)
  - Death [Fatal]
  - Immune effector cell-associated neurotoxicity syndrome [Unknown]
  - Lymphopenia [Unknown]
  - Acute lymphocytic leukaemia recurrent [Unknown]
  - Cytokine release syndrome [Unknown]
  - Cytopenia [Unknown]
  - Cytomegalovirus infection reactivation [Unknown]
  - Viral haemorrhagic cystitis [Unknown]
  - Epstein-Barr virus infection reactivation [Unknown]
  - Neutropenia [Recovered/Resolved]
  - Graft versus host disease [Unknown]
  - Acute respiratory distress syndrome [Unknown]
  - Thrombocytopenia [Unknown]
  - Drug ineffective [Unknown]
  - Respiratory syncytial virus infection [Unknown]
  - Coronavirus infection [Unknown]
  - BK virus infection [Unknown]
  - Adenovirus reactivation [Unknown]
  - Rhinovirus infection [Unknown]
  - Viral infection [Unknown]
  - Bacterial infection [Unknown]
  - Fungal infection [Unknown]
